FAERS Safety Report 6518860-7 (Version None)
Quarter: 2009Q4

REPORT INFORMATION
  Report Type: 
  Country: None (occurrence: None)
  Receive Date: 20091228
  Receipt Date: 20091223
  Transmission Date: 20100525
  Serious: Yes (Death, Other)
  Sender: FDA-Public Use
  Company Number: CN-JNJFOC-20091206721

PATIENT
  Age: 70 Year
  Sex: Female
  Weight: 68.5 kg

DRUGS (2)
  1. SPORANOX [Suspect]
     Indication: DRUG USE FOR UNKNOWN INDICATION
     Route: 042
  2. TEICOPLANIN [Concomitant]
     Indication: LUNG INFECTION
     Route: 065

REACTIONS (1)
  - DEATH [None]
